FAERS Safety Report 5281127-1 (Version None)
Quarter: 2007Q1

REPORT INFORMATION
  Report Type: 
  Country: None (occurrence: None)
  Receive Date: 20070323
  Receipt Date: 20070313
  Transmission Date: 20070707
  Serious: Yes (Hospitalization)
  Sender: FDA-Public Use
  Company Number: GXKR2007GB02502

PATIENT
  Age: 38 Year
  Sex: Female

DRUGS (1)
  1. CHLORPROMAZINE [Suspect]
     Indication: SCHIZOAFFECTIVE DISORDER
     Dosage: 100 MG UNK, UNKNOWN

REACTIONS (9)
  - ANTIPHOSPHOLIPID SYNDROME [None]
  - CONFUSIONAL STATE [None]
  - ENCEPHALOPATHY [None]
  - GRAND MAL CONVULSION [None]
  - HYPOVENTILATION [None]
  - PARALYSIS [None]
  - SOMNOLENCE [None]
  - STATUS EPILEPTICUS [None]
  - THROMBOCYTOPENIA [None]
